FAERS Safety Report 13656353 (Version 2)
Quarter: 2017Q3

REPORT INFORMATION
  Report Type: Spontaneous
  Country: US (occurrence: US)
  Receive Date: 20170615
  Receipt Date: 20170731
  Transmission Date: 20171127
  Serious: Yes (Life-Threatening, Hospitalization, Other)
  Sender: FDA-Public Use
  Company Number: US-DEPOMED, INC.-US-2017DEP001234

PATIENT

DRUGS (18)
  1. METOCLOPRAMIDE HCL [Concomitant]
     Active Substance: METOCLOPRAMIDE HYDROCHLORIDE
     Indication: MIGRAINE WITHOUT AURA
     Dosage: UNK, PRN, 1/2 TO 1 TABLET THREE TIMES DAILY AS NEEDED
     Dates: start: 20160118
  2. NARATRIPTAN HCL [Concomitant]
     Active Substance: NARATRIPTAN HYDROCHLORIDE
     Indication: MIGRAINE WITHOUT AURA
     Dosage: 2.5 MG, PRN, EVERY 4 HRS AS NEEDED
     Dates: start: 20160727
  3. ONZETRA [Concomitant]
     Active Substance: SUMATRIPTAN SUCCINATE
     Indication: MIGRAINE WITHOUT AURA
     Dosage: UNK, PRN, 1 SEPARATE NOSEPIECE TO EACH NOSTRIL WITH REPEAT IF NEEDED AFTER 2 HRS
     Dates: start: 20161110
  4. PROMETHAZINE HCL [Concomitant]
     Active Substance: PROMETHAZINE HYDROCHLORIDE
     Indication: PRODUCT USED FOR UNKNOWN INDICATION
     Dosage: 25 MG, PRN
     Route: 048
  5. BOTOX [Concomitant]
     Active Substance: ONABOTULINUMTOXINA
     Dosage: UNK
     Dates: start: 20170130
  6. BOTOX [Concomitant]
     Active Substance: ONABOTULINUMTOXINA
     Dosage: UNK
     Dates: start: 20170410
  7. SUMATRIPTAN SUCCINATE. [Concomitant]
     Active Substance: SUMATRIPTAN SUCCINATE
     Indication: HEADACHE
     Dosage: 100 MG, PRN, EVERY 2 HRS AS NEEDED
     Dates: start: 20161115
  8. AMITIZA [Concomitant]
     Active Substance: LUBIPROSTONE
     Indication: CONSTIPATION
     Dosage: 24 ?G, BID
     Dates: start: 20160330
  9. DEXILANT [Concomitant]
     Active Substance: DEXLANSOPRAZOLE
     Indication: PRODUCT USED FOR UNKNOWN INDICATION
     Dosage: 60 MG, QD
     Route: 048
  10. ONDANSETRON HCL [Concomitant]
     Active Substance: ONDANSETRON HYDROCHLORIDE
     Indication: MIGRAINE WITHOUT AURA
     Dosage: UNK, PRN, 1-2 TABLETS THREE TIMES DAILY AS NEEDED
     Route: 048
     Dates: start: 20170130
  11. DICLOFENAC POTASSIUM. [Concomitant]
     Active Substance: DICLOFENAC POTASSIUM
     Indication: MIGRAINE WITH AURA
     Dosage: UNK, PRN, 1-2 TABLETS TWO TIMES DAILY AS NEEDED
     Route: 048
     Dates: start: 20170410
  12. TROKENDI [Concomitant]
     Active Substance: TOPIRAMATE
     Indication: MIGRAINE WITHOUT AURA
     Dosage: 200 MG, QD
     Dates: start: 20170503
  13. GRALISE [Suspect]
     Active Substance: GABAPENTIN
     Indication: MIGRAINE WITHOUT AURA
     Dosage: 1200 MG, QD
     Route: 048
     Dates: start: 20160118
  14. INDOMETHACIN                       /00003801/ [Concomitant]
     Active Substance: INDOMETHACIN
     Indication: MIGRAINE WITHOUT AURA
     Dosage: 50 MG, PRN, THREE TIMES DAILY AS NEEDED
     Dates: start: 20170410
  15. L-METHYLFOLATE [Concomitant]
     Active Substance: LEVOMEFOLIC ACID
     Indication: HOMOCYSTINURIA
     Dosage: 15 MG, QD
     Dates: start: 20160118
  16. BOTOX [Concomitant]
     Active Substance: ONABOTULINUMTOXINA
     Indication: MIGRAINE
     Dosage: UNK
     Dates: start: 20161109
  17. TIZANIDINE HCL [Concomitant]
     Active Substance: TIZANIDINE HYDROCHLORIDE
     Indication: MIGRAINE WITHOUT AURA
     Dosage: UNK, 1/4 TO 2 TABLETS EVERY 8 HRS AS NEEDED
     Dates: start: 20160321
  18. INDOMETHACIN                       /00003801/ [Concomitant]
     Active Substance: INDOMETHACIN
     Indication: PAIN

REACTIONS (2)
  - Drug titration error [Not Recovered/Not Resolved]
  - Shunt malfunction [Unknown]

NARRATIVE: CASE EVENT DATE: 20160728
